FAERS Safety Report 22216236 (Version 1)
Quarter: 2023Q2

REPORT INFORMATION
  Report Type: Spontaneous
  Country: US (occurrence: US)
  Receive Date: 20230417
  Receipt Date: 20230417
  Transmission Date: 20230721
  Serious: No
  Sender: FDA-Public Use
  Company Number: US-JNJFOC-20230408888

PATIENT
  Age: 73 Year
  Sex: Male
  Weight: 87.622 kg

DRUGS (1)
  1. TYLENOL 8HR [Suspect]
     Active Substance: ACETAMINOPHEN
     Indication: Arthralgia
     Dosage: TWICE A DAY TWELVE HOURS APART
     Route: 048

REACTIONS (1)
  - Inappropriate schedule of product administration [Unknown]
